FAERS Safety Report 25789910 (Version 2)
Quarter: 2025Q4

REPORT INFORMATION
  Report Type: Spontaneous
  Country: US (occurrence: US)
  Receive Date: 20250911
  Receipt Date: 20251105
  Transmission Date: 20260117
  Serious: Yes (Hospitalization, Other)
  Sender: IMMUNOCORE
  Company Number: US-IMMUNOCORE, LTD.-2025-IMC-004679

PATIENT
  Age: 64 Year
  Sex: Female

DRUGS (6)
  1. TEBENTAFUSP [Suspect]
     Active Substance: TEBENTAFUSP
     Indication: Metastatic ocular melanoma
     Dosage: 20 MICROGRAM/DOSE 1
     Dates: start: 20250811, end: 20250811
  2. TEBENTAFUSP [Suspect]
     Active Substance: TEBENTAFUSP
     Dosage: 30 MICROGRAM/ DOSE 2
     Dates: start: 20250818, end: 20250818
  3. TEBENTAFUSP [Suspect]
     Active Substance: TEBENTAFUSP
     Dosage: 68 MICROGRAM/ DOSE 3
     Dates: start: 20250825, end: 20250825
  4. PANTOPRAZOLE [Concomitant]
     Active Substance: PANTOPRAZOLE
     Indication: Product used for unknown indication
  5. DEXAMETHASONE [Concomitant]
     Active Substance: DEXAMETHASONE
     Indication: Product used for unknown indication
  6. SPIRONOLACTONE AND HYDROCHLOROTHIAZIDE [Concomitant]
     Active Substance: HYDROCHLOROTHIAZIDE\SPIRONOLACTONE
     Indication: Product used for unknown indication

REACTIONS (5)
  - Facial paralysis [Recovered/Resolved]
  - Thunderclap headache [Not Recovered/Not Resolved]
  - Cytokine release syndrome [Recovered/Resolved]
  - Pyrexia [Recovered/Resolved]
  - Hypotension [Recovered/Resolved]

NARRATIVE: CASE EVENT DATE: 20250825
